FAERS Safety Report 8279932-2 (Version None)
Quarter: 2012Q2

REPORT INFORMATION
  Report Type: 
  Country: None (occurrence: None)
  Receive Date: 20120412
  Receipt Date: 20110622
  Transmission Date: 20120825
  Serious: No
  Sender: FDA-Public Use
  Company Number: US-ASTRAZENECA-2010SE45528

PATIENT
  Age: 71 Year
  Sex: Female

DRUGS (3)
  1. NEXIUM [Suspect]
     Route: 048
  2. PRILOSEC [Suspect]
     Route: 048
  3. NEXIUM [Suspect]
     Route: 048

REACTIONS (7)
  - POLYP [None]
  - DRUG HYPERSENSITIVITY [None]
  - HERNIA [None]
  - POLYPECTOMY [None]
  - BONE PAIN [None]
  - ENDOSCOPY UPPER GASTROINTESTINAL TRACT [None]
  - GASTRIC ULCER [None]
